FAERS Safety Report 18696746 (Version 1)
Quarter: 2021Q1

REPORT INFORMATION
  Report Type: Other
  Country: US (occurrence: US)
  Receive Date: 20210104
  Receipt Date: 20210104
  Transmission Date: 20210419
  Serious: Yes (Hospitalization, Other)
  Sender: FDA-Public Use
  Company Number: US-NAVINTA LLC-000114

PATIENT
  Age: 74 Year
  Sex: Female
  Weight: 63.6 kg

DRUGS (22)
  1. HYDROCODONE/PARACETAMOL [Concomitant]
     Active Substance: ACETAMINOPHEN\HYDROCODONE BITARTRATE
     Indication: MUSCLE SPASMS
     Dosage: ACETAMINOPHEN 325MG/HYDROCODONE 5 MG ORAL  EVERY 4 HOURS AS NEEDED (Q4 H) FOR DAY 02?DAY 14
     Route: 048
  2. DEXAMETHASONE. [Concomitant]
     Active Substance: DEXAMETHASONE
     Indication: PLASMA CELL MYELOMA
     Dosage: 4 MG IV DAILY FOR DAY 16?DAY 20
     Route: 042
  3. LIDOCAINE. [Concomitant]
     Active Substance: LIDOCAINE
     Indication: PAIN
     Dosage: TRANSDERMAL PATCH DAILY FOR DAY 14?DAY 19
  4. BACLOFEN. [Concomitant]
     Active Substance: BACLOFEN
     Indication: MUSCLE SPASMS
     Dosage: 10 MG PER ORAL 3 TIMES A DAY (TID) FOR DAY 14? DAY 21
     Route: 048
  5. LABETALOL [Concomitant]
     Active Substance: LABETALOL\LABETALOL HYDROCHLORIDE
     Indication: HYPERTENSION
     Dosage: 300 MG PER ORAL TWICE A DAY (BID) FOR DAY 11? DAY 19
     Route: 048
  6. DEXAMETHASONE. [Concomitant]
     Active Substance: DEXAMETHASONE
     Indication: MUSCLE SPASMS
     Dosage: 20 MG IV DAILY
     Route: 042
  7. TIZANIDINE. [Interacting]
     Active Substance: TIZANIDINE
     Indication: MUSCLE SPASMS
     Dosage: 2 MG PER ORAL 3 TIMES A DAY (TID) FOR DAY 9? DAY 11
     Route: 048
  8. BORTEZOMIB. [Interacting]
     Active Substance: BORTEZOMIB
     Indication: PLASMA CELL MYELOMA
     Dosage: 2.3 MG SUBCUTANEOUS (SQ). DAY 16
     Route: 058
  9. BACLOFEN. [Concomitant]
     Active Substance: BACLOFEN
     Indication: PAIN
     Dosage: 10 MG PER ORAL 3 TIMES A DAY (TID) FOR DAY 14? DAY 21
     Route: 048
  10. DABIGATRAN [Concomitant]
     Active Substance: DABIGATRAN
     Indication: ATRIAL FIBRILLATION
     Dosage: 150 MG PER ORAL TWICE A DAY (BID) FOR DAY 12?DAY 29
     Route: 048
  11. LABETALOL [Concomitant]
     Active Substance: LABETALOL\LABETALOL HYDROCHLORIDE
     Indication: HYPERTENSION
     Dosage: 200 MG PER ORAL TWICE A DAY (BID) FOR DAY 19? DAY 29
     Route: 048
  12. LABETALOL [Concomitant]
     Active Substance: LABETALOL\LABETALOL HYDROCHLORIDE
     Indication: HYPERTENSION
     Dosage: 200 MG PER ORAL TWICE A DAY (BID) FOR DAY 0? DAY 11
     Route: 048
  13. METHADONE [Concomitant]
     Active Substance: METHADONE HYDROCHLORIDE
     Indication: PAIN
     Dosage: 5 MG PER ORAL (PO) EVERY 6 HOURS (Q6H) TO 5 MG PER ORAL (PO) EVERY 8 HOURS (Q8 H) FOR DAY 10?DAY 29
     Route: 048
  14. ACYCLOVIR. [Suspect]
     Active Substance: ACYCLOVIR
     Indication: ANTIVIRAL PROPHYLAXIS
     Dosage: 400 MG PER ORAL (PO) TWICE A DAY (BID) FOR DAY 16?DAY29
     Route: 048
  15. LIDOCAINE. [Concomitant]
     Active Substance: LIDOCAINE
     Indication: MUSCLE SPASMS
     Dosage: TRANSDERMAL PATCH DAILY FOR DAY 14?DAY 19
  16. DEXAMETHASONE. [Concomitant]
     Active Substance: DEXAMETHASONE
     Indication: PLASMA CELL MYELOMA
     Dosage: 4 MG PER ORAL EVERY 6 HOURS (Q6H) TO 4 MG PER ORAL EVERY 8 HOURS (Q8H) FOR DAY 21?DAY 28
     Route: 048
  17. PANTOPRAZOLE [Concomitant]
     Active Substance: PANTOPRAZOLE
     Indication: GASTROINTESTINAL ULCER
     Dosage: 40 MG PER ORAL DAILY FOR DAY 03?DAY 29
     Route: 048
  18. HYDRALAZINE [Suspect]
     Active Substance: HYDRALAZINE HYDROCHLORIDE
     Indication: HYPERTENSION
     Dosage: 25 MG PER ORAL TWICE A DAY (BID). DAY 11?DAY 29
     Route: 048
  19. OXYCODONE [Concomitant]
     Active Substance: OXYCODONE
     Indication: PAIN
     Dosage: 10 MG PRN EVERY 4 HOURS AS NEEDED FOR DAY 22?DAY 29
     Route: 048
  20. AMLODIPINE [Concomitant]
     Active Substance: AMLODIPINE BESYLATE
     Indication: HYPERTENSION
     Dosage: 5 MG PER ORAL (PO) TWICE A DAY (BID) FOR DAY 12?DAY 29
     Route: 048
  21. OXYCODONE [Concomitant]
     Active Substance: OXYCODONE
     Indication: MUSCLE SPASMS
     Dosage: 10 MG SUTAINED RELEASE PER ORAL 3 TIMES A DAY (TID) FOR DAY 19?DAY 29
     Route: 048
  22. METHADONE [Concomitant]
     Active Substance: METHADONE HYDROCHLORIDE
     Indication: MUSCLE SPASMS
     Dosage: 5 MG PER ORAL (PO) EVERY 6 HOURS (Q6H) TO 5 MG PER ORAL (PO) EVERY 8 HOURS (Q8 H) FOR DAY 10?DAY 29
     Route: 048

REACTIONS (2)
  - Drug-induced liver injury [Recovered/Resolved]
  - Drug interaction [Unknown]
